FAERS Safety Report 9539409 (Version 2)
Quarter: 2013Q3

REPORT INFORMATION
  Report Type: Spontaneous
  Country: RU (occurrence: RU)
  Receive Date: 20130920
  Receipt Date: 20130920
  Transmission Date: 20140515
  Serious: Yes (Other)
  Sender: FDA-Public Use
  Company Number: RU-ABBVIE-13P-251-1135516-00

PATIENT
  Age: 1 Year
  Sex: Male

DRUGS (3)
  1. RITONAVIR [Suspect]
     Indication: HIV INFECTION
     Route: 065
     Dates: start: 19990419, end: 20020327
  2. RITONAVIR [Suspect]
     Dates: start: 200002, end: 20020327
  3. LAMIVUDINE [Suspect]
     Indication: HIV INFECTION
     Route: 065
     Dates: start: 19990419, end: 20020327

REACTIONS (14)
  - Psychomotor retardation [Not Recovered/Not Resolved]
  - Drug ineffective [Not Recovered/Not Resolved]
  - AIDS dementia complex [Not Recovered/Not Resolved]
  - Astigmatism [Not Recovered/Not Resolved]
  - Quadriparesis [Not Recovered/Not Resolved]
  - Hemiparesis [Not Recovered/Not Resolved]
  - Intertrigo [Not Recovered/Not Resolved]
  - Skin candida [Not Recovered/Not Resolved]
  - Phimosis [Not Recovered/Not Resolved]
  - Dermatitis atopic [Not Recovered/Not Resolved]
  - Dermatitis allergic [Not Recovered/Not Resolved]
  - Fungal skin infection [Not Recovered/Not Resolved]
  - Urticaria papular [Not Recovered/Not Resolved]
  - Tuberculosis [Not Recovered/Not Resolved]
